FAERS Safety Report 8910818 (Version 1)
Quarter: 2012Q4

REPORT INFORMATION
  Report Type: 
  Country: BR (occurrence: BR)
  Receive Date: 20121116
  Receipt Date: 20121116
  Transmission Date: 20130627
  Serious: Yes (Other)
  Sender: FDA-Public Use
  Company Number: BR-PFIZER INC-2012283746

PATIENT
  Age: 77 Year
  Sex: Male

DRUGS (9)
  1. VIAGRA [Suspect]
     Dosage: 50 mg, UNK
     Route: 048
     Dates: start: 2008
  2. PROCIMAX [Concomitant]
     Dosage: UNK
  3. CITALOPRAM [Concomitant]
     Dosage: UNK
  4. PROLOPA [Concomitant]
     Dosage: UNK
  5. PROLOPA HBS [Concomitant]
     Dosage: UNK
  6. RANITIDINE [Concomitant]
     Dosage: UNK
  7. TEGRETOL [Concomitant]
     Dosage: UNK
  8. RIVOTRIL [Concomitant]
  9. SOMALGIN [Concomitant]

REACTIONS (4)
  - Parkinson^s disease [Not Recovered/Not Resolved]
  - Prostatomegaly [Not Recovered/Not Resolved]
  - Prostatic specific antigen abnormal [Not Recovered/Not Resolved]
  - Drug ineffective [Unknown]
